FAERS Safety Report 9034901 (Version 1)
Quarter: 2013Q1

REPORT INFORMATION
  Report Type: Report from Study
  Country: US (occurrence: US)
  Receive Date: 20130129
  Receipt Date: 20130129
  Transmission Date: 20140127
  Serious: No
  Sender: FDA-Public Use
  Company Number: US-ABBOTT-12P-163-0893121-00

PATIENT
  Age: 30 Year
  Sex: Female

DRUGS (5)
  1. HUMIRA 40 MG/0.8 ML PEN [Suspect]
     Indication: CROHN^S DISEASE
     Dates: start: 2007, end: 20111220
  2. IMURAN [Concomitant]
     Indication: CROHN^S DISEASE
  3. ALLOPURINOL [Concomitant]
     Indication: CROHN^S DISEASE
  4. ENTOCORT [Concomitant]
     Indication: CROHN^S DISEASE
  5. VITAMIN B12 [Concomitant]
     Indication: VITAMIN B12 DEFICIENCY

REACTIONS (5)
  - Nausea [Recovering/Resolving]
  - Vomiting [Recovering/Resolving]
  - Diarrhoea [Recovering/Resolving]
  - Sinus congestion [Not Recovered/Not Resolved]
  - Respiratory tract congestion [Not Recovered/Not Resolved]
